FAERS Safety Report 10903204 (Version 1)
Quarter: 2015Q1

REPORT INFORMATION
  Report Type: Spontaneous
  Country: None (occurrence: US)
  Receive Date: 20150311
  Receipt Date: 20150311
  Transmission Date: 20150721
  Serious: No
  Sender: FDA-Public Use
  Company Number: US-TEVA-538291USA

PATIENT
  Age: 41 Year
  Sex: Female

DRUGS (2)
  1. TEMOZOLOMIDE. [Suspect]
     Active Substance: TEMOZOLOMIDE
     Dosage: TAKE 1 CAPSULE EVERY DAY FOR 5 DAYS OUT OF 28 DAY CYCLE
     Route: 048
     Dates: start: 20141003
  2. TEMOZOLOMIDE. [Suspect]
     Active Substance: TEMOZOLOMIDE
     Dosage: TAKE 1 CAPSULE EVERY DAY FOR 5 DAYS OUT OF 28 DAY CYCLE
     Route: 048
     Dates: start: 20141003

REACTIONS (1)
  - Urticaria [Recovered/Resolved]

NARRATIVE: CASE EVENT DATE: 20150102
